FAERS Safety Report 6066541-9 (Version None)
Quarter: 2009Q1

REPORT INFORMATION
  Report Type: 
  Country: None (occurrence: None)
  Receive Date: 20090205
  Receipt Date: 20090130
  Transmission Date: 20090719
  Serious: Yes (Death, Hospitalization)
  Sender: FDA-Public Use
  Company Number: A0735850A

PATIENT
  Age: 66 Year
  Sex: Male

DRUGS (5)
  1. AVANDIA [Suspect]
     Indication: DIABETES MELLITUS
     Dosage: 2MG TWICE PER DAY
     Route: 048
     Dates: start: 20040601, end: 20050601
  2. AVANDAMET [Suspect]
     Route: 048
     Dates: start: 20050228, end: 20050501
  3. METFORMIN [Concomitant]
     Dates: end: 20050601
  4. METOPROLOL SUCCINATE [Concomitant]
     Dates: end: 20050601
  5. ZOCOR [Concomitant]
     Dates: end: 20050601

REACTIONS (4)
  - CARDIAC ARREST [None]
  - CARDIAC FAILURE CONGESTIVE [None]
  - HEART INJURY [None]
  - MYOCARDIAL INFARCTION [None]
